FAERS Safety Report 9846954 (Version 1)
Quarter: 2013Q4

REPORT INFORMATION
  Report Type: Spontaneous
  Country: US (occurrence: None)
  Receive Date: 20131219
  Receipt Date: 20131219
  Transmission Date: 20140711
  Serious: Yes (Other)
  Sender: FDA-Public Use
  Company Number: 163-20785-13020039

PATIENT
  Age: 73 Year
  Sex: Female

DRUGS (2)
  1. THALOMID [Suspect]
     Indication: PLASMA CELL MYELOMA
     Dosage: 1 IN  1 D
     Route: 048
     Dates: start: 201208
  2. VELCADE (BORTEZOMIB) (INJECTION) [Suspect]
     Indication: NEOPLASM MALIGNANT
     Dosage: 1 IN 1 D
     Dates: start: 201301

REACTIONS (1)
  - Eye irritation [None]
